FAERS Safety Report 16185552 (Version 3)
Quarter: 2020Q1

REPORT INFORMATION
  Report Type: Spontaneous
  Country: US (occurrence: US)
  Receive Date: 20190411
  Receipt Date: 20200327
  Transmission Date: 20200409
  Serious: Yes (Other)
  Sender: FDA-Public Use
  Company Number: US-PFIZER INC-2019099270

PATIENT
  Age: 66 Year
  Sex: Male

DRUGS (1)
  1. XELJANZ XR [Suspect]
     Active Substance: TOFACITINIB CITRATE
     Dosage: 11 MG, UNK
     Dates: start: 20190325

REACTIONS (9)
  - Product dose omission [Unknown]
  - Lethargy [Unknown]
  - Presyncope [Unknown]
  - Dizziness [Unknown]
  - Inner ear disorder [Unknown]
  - Arthralgia [Unknown]
  - Depressed mood [Unknown]
  - Fatigue [Unknown]
  - Loss of consciousness [Recovering/Resolving]
